FAERS Safety Report 15316447 (Version 1)
Quarter: 2018Q3

REPORT INFORMATION
  Report Type: Spontaneous
  Country: US (occurrence: US)
  Receive Date: 20180816
  Receipt Date: 20180816
  Transmission Date: 20181010
  Serious: Yes (Death, Life-Threatening)
  Sender: FDA-Public Use
  Company Number: None

PATIENT
  Age: 29 Year
  Sex: Male
  Weight: 83.25 kg

DRUGS (1)
  1. KLONOPIN [Suspect]
     Active Substance: CLONAZEPAM
     Indication: ANXIETY
     Route: 048

REACTIONS (7)
  - Completed suicide [None]
  - Anxiety [None]
  - Depression [None]
  - Social avoidant behaviour [None]
  - Loss of personal independence in daily activities [None]
  - Cognitive disorder [None]
  - Insomnia [None]

NARRATIVE: CASE EVENT DATE: 20160817
